FAERS Safety Report 16989146 (Version 2)
Quarter: 2020Q1

REPORT INFORMATION
  Report Type: Report from Study
  Country: US (occurrence: US)
  Receive Date: 20191104
  Receipt Date: 20200106
  Transmission Date: 20200409
  Serious: Yes (Hospitalization, Other)
  Sender: FDA-Public Use
  Company Number: US-BRISTOL-MYERS SQUIBB COMPANY-BMS-2019-102821

PATIENT
  Age: 66 Year
  Sex: Male
  Weight: 53.97 kg

DRUGS (2)
  1. NIVOLUMAB [Suspect]
     Active Substance: NIVOLUMAB
     Indication: GASTROINTESTINAL STROMAL TUMOUR
     Route: 065
  2. IPILIMUMAB [Suspect]
     Active Substance: IPILIMUMAB
     Indication: GASTROINTESTINAL STROMAL TUMOUR
     Route: 065

REACTIONS (2)
  - Vomiting [Unknown]
  - Oesophagitis [Unknown]

NARRATIVE: CASE EVENT DATE: 201908
